FAERS Safety Report 4331248-2 (Version None)
Quarter: 2004Q1

REPORT INFORMATION
  Report Type: 
  Country: None (occurrence: None)
  Receive Date: 20040331
  Receipt Date: 20040319
  Transmission Date: 20041129
  Serious: Yes (Hospitalization)
  Sender: FDA-Public Use
  Company Number: 2004018720

PATIENT
  Age: 30 Year
  Sex: Female

DRUGS (2)
  1. VFEND [Suspect]
     Indication: ILL-DEFINED DISORDER
     Dosage: INTRAVENOUS, ORAL
     Route: 042
     Dates: end: 20040101
  2. VFEND [Suspect]
     Indication: ILL-DEFINED DISORDER
     Dosage: INTRAVENOUS, ORAL
     Route: 042
     Dates: start: 20040201

REACTIONS (2)
  - HALLUCINATION [None]
  - HEMIPARESIS [None]
